FAERS Safety Report 5005962-X (Version None)
Quarter: 2006Q2

REPORT INFORMATION
  Report Type: 
  Country: None (occurrence: None)
  Receive Date: 20060517
  Receipt Date: 20060517
  Transmission Date: 20061013
  Serious: Yes (Hospitalization)
  Sender: FDA-Public Use
  Company Number: None

PATIENT
  Age: 43 Year
  Sex: Male
  Weight: 96.6162 kg

DRUGS (8)
  1. BUPROPION 100 MG [Suspect]
     Indication: BIPOLAR DISORDER
     Dosage: 100 MG TID PO
     Route: 048
     Dates: start: 20050131, end: 20060510
  2. BUPROPION HCL [Concomitant]
  3. CYANOCOBALAMIN [Concomitant]
  4. DIAZEPAM [Concomitant]
  5. FERROUS SULFATE TAB [Concomitant]
  6. LISINOPRIL [Concomitant]
  7. LITHIUM CARBONATE [Concomitant]
  8. RANITIDINE [Concomitant]

REACTIONS (4)
  - DISORIENTATION [None]
  - GRAND MAL CONVULSION [None]
  - PAIN [None]
  - TONGUE BITING [None]
